FAERS Safety Report 7388125-2 (Version None)
Quarter: 2011Q2

REPORT INFORMATION
  Report Type: 
  Country: None (occurrence: None)
  Receive Date: 20110401
  Receipt Date: 20110324
  Transmission Date: 20111010
  Serious: Yes (Other)
  Sender: FDA-Public Use
  Company Number: US-US-EMD SERONO, INC.-7049912

PATIENT
  Sex: Male

DRUGS (2)
  1. REBIF [Suspect]
     Indication: MULTIPLE SCLEROSIS
     Route: 058
     Dates: start: 20100416
  2. ALEVE [Concomitant]
     Indication: PREMEDICATION

REACTIONS (4)
  - HEADACHE [None]
  - PAIN [None]
  - INJECTION SITE ERYTHEMA [None]
  - VISUAL FIELD DEFECT [None]
